FAERS Safety Report 12279134 (Version 2)
Quarter: 2020Q3

REPORT INFORMATION
  Report Type: Spontaneous
  Country: PL (occurrence: PL)
  Receive Date: 20160418
  Receipt Date: 20200923
  Transmission Date: 20201102
  Serious: Yes (Hospitalization, Other)
  Sender: FDA-Public Use
  Company Number: PHHY2016PL047578

PATIENT
  Age: 69 Year
  Sex: Female

DRUGS (6)
  1. SANDOSTATIN LAR DEPOT [Suspect]
     Active Substance: OCTREOTIDE ACETATE
     Dosage: 30 MG, QMO (EVERY 30 DAYS)
     Route: 065
     Dates: start: 2011, end: 2013
  2. SANDOSTATIN LAR DEPOT [Suspect]
     Active Substance: OCTREOTIDE ACETATE
     Dosage: 30 MG, QMO (EVERY 30 DAYS)
     Route: 065
     Dates: start: 200901, end: 201001
  3. NEPHROTECT [Concomitant]
     Active Substance: AMINO ACIDS, SOURCE UNSPECIFIED
     Indication: PRODUCT USED FOR UNKNOWN INDICATION
     Dosage: UNK
     Route: 041
  4. DOTATATE [Concomitant]
     Active Substance: OXODOTREOTIDE
     Indication: PRODUCT USED FOR UNKNOWN INDICATION
     Dosage: 400 MCI (AT 12?WEEK INTERVALS ? 3?DAY HOSPITALIZATION)
     Route: 065
     Dates: start: 2010
  5. SANDOSTATIN LAR DEPOT [Suspect]
     Active Substance: OCTREOTIDE ACETATE
     Dosage: 30 MG, QMO (EVERY 28 DAYS)
     Route: 065
     Dates: start: 20161105
  6. SANDOSTATIN LAR DEPOT [Suspect]
     Active Substance: OCTREOTIDE ACETATE
     Indication: NEUROENDOCRINE TUMOUR
     Dosage: 30 MG, QMO (EVERY 28 DAYS)
     Route: 065
     Dates: start: 2007

REACTIONS (38)
  - Malignant neoplasm progression [Unknown]
  - Cachexia [Unknown]
  - Blood chromogranin A increased [Recovering/Resolving]
  - Pulmonary vascular disorder [Recovered/Resolved]
  - Decreased appetite [Unknown]
  - Cardiac disorder [Unknown]
  - Erythema [Recovered/Resolved]
  - Telangiectasia [Recovered/Resolved]
  - Anaemia [Unknown]
  - Hepatic pain [Recovered/Resolved]
  - Blood bilirubin increased [Unknown]
  - Small intestine carcinoma [Unknown]
  - Metastases to liver [Not Recovered/Not Resolved]
  - Serum serotonin increased [Recovering/Resolving]
  - 5-hydroxyindolacetic acid in urine increased [Recovering/Resolving]
  - Exercise tolerance decreased [Recovered/Resolved]
  - Diarrhoea [Recovered/Resolved]
  - Neoplasm progression [Unknown]
  - Hepatic cyst [Unknown]
  - Pyrexia [Recovered/Resolved]
  - Pulmonary valve stenosis [Unknown]
  - Mitral valve incompetence [Unknown]
  - Endocrine neoplasm [Unknown]
  - Pulmonary valve incompetence [Unknown]
  - Weight decreased [Unknown]
  - Abdominal pain [Unknown]
  - Vomiting [Recovered/Resolved]
  - Blood pressure increased [Unknown]
  - Fatigue [Unknown]
  - Dyspnoea [Unknown]
  - Carcinoid heart disease [Unknown]
  - Mitral valve stenosis [Unknown]
  - Hepatomegaly [Unknown]
  - Adenoma benign [Unknown]
  - Cholelithiasis [Unknown]
  - Flushing [Recovered/Resolved]
  - Abdominal pain lower [Unknown]
  - Nausea [Recovered/Resolved]

NARRATIVE: CASE EVENT DATE: 2009
